FAERS Safety Report 6115042-8 (Version None)
Quarter: 2009Q1

REPORT INFORMATION
  Report Type: 
  Country: None (occurrence: None)
  Receive Date: 20090313
  Receipt Date: 20090306
  Transmission Date: 20090719
  Serious: Yes (Congenital Anomaly)
  Sender: FDA-Public Use
  Company Number: A0772888A

PATIENT
  Sex: Male

DRUGS (1)
  1. PAXIL [Suspect]
     Indication: ANXIETY
     Dosage: 20MG UNKNOWN

REACTIONS (2)
  - COARCTATION OF THE AORTA [None]
  - CONGENITAL CARDIOVASCULAR ANOMALY [None]
